FAERS Safety Report 25466469 (Version 1)
Quarter: 2025Q2

REPORT INFORMATION
  Report Type: Other
  Country: CA (occurrence: CA)
  Receive Date: 20250623
  Receipt Date: 20250623
  Transmission Date: 20250716
  Serious: Yes (Hospitalization, Other)
  Sender: LUPIN
  Company Number: CA-LUPIN HEALTHCARE (UK) LIMITED-2025-05114

PATIENT
  Age: 35 Year

DRUGS (12)
  1. TIOTROPIUM [Suspect]
     Active Substance: TIOTROPIUM
     Indication: Asthma
  2. TIOTROPIUM [Suspect]
     Active Substance: TIOTROPIUM
     Route: 050
  3. DUPILUMAB [Suspect]
     Active Substance: DUPILUMAB
     Indication: Asthma
     Route: 065
  4. FLUTICASONE FUROATE [Suspect]
     Active Substance: FLUTICASONE FUROATE
     Indication: Asthma
  5. FLUTICASONE FUROATE [Suspect]
     Active Substance: FLUTICASONE FUROATE
     Route: 050
  6. MIRTAZAPINE [Suspect]
     Active Substance: MIRTAZAPINE
     Indication: Product used for unknown indication
     Route: 065
  7. OMALIZUMAB [Suspect]
     Active Substance: OMALIZUMAB
     Indication: Asthma
     Route: 065
  8. OMALIZUMAB [Suspect]
     Active Substance: OMALIZUMAB
     Route: 065
  9. PREDNISONE [Suspect]
     Active Substance: PREDNISONE
     Indication: Asthma
     Dosage: 20 MILLIGRAM, QD (1 EVERY 1 DAYS)
     Route: 065
  10. PREDNISONE [Suspect]
     Active Substance: PREDNISONE
     Route: 065
  11. VILANTEROL [Suspect]
     Active Substance: VILANTEROL
     Indication: Asthma
  12. VILANTEROL [Suspect]
     Active Substance: VILANTEROL
     Route: 050

REACTIONS (8)
  - Diabetes mellitus [Unknown]
  - Gestational hypertension [Unknown]
  - Live birth [Unknown]
  - Maternal exposure before pregnancy [Unknown]
  - Maternal exposure during pregnancy [Unknown]
  - Premature delivery [Unknown]
  - Product ineffective [Unknown]
  - Steroid diabetes [Unknown]
